FAERS Safety Report 25958838 (Version 2)
Quarter: 2025Q4

REPORT INFORMATION
  Report Type: Report from Study
  Country: EU (occurrence: EU)
  Receive Date: 20251025
  Receipt Date: 20251204
  Transmission Date: 20260118
  Serious: Yes (Hospitalization)
  Sender: ABBVIE
  Company Number: EU-ABBVIE-6514277

PATIENT
  Age: 36 Year
  Sex: Male
  Weight: 70 kg

DRUGS (1)
  1. SKYRIZI [Suspect]
     Active Substance: RISANKIZUMAB-RZAA
     Indication: Psoriasis
     Dosage: DOSE FORM: SOLUTION FOR INJECTION IN PRE-FILLED PEN
     Route: 058
     Dates: start: 20231114, end: 202509

REACTIONS (5)
  - Rheumatoid arthritis [Recovering/Resolving]
  - Peripheral swelling [Recovering/Resolving]
  - Back pain [Recovering/Resolving]
  - Musculoskeletal stiffness [Recovering/Resolving]
  - Sacral pain [Unknown]

NARRATIVE: CASE EVENT DATE: 20240401
